FAERS Safety Report 8888507 (Version 1)
Quarter: 2012Q4

REPORT INFORMATION
  Report Type: 
  Country: US (occurrence: US)
  Receive Date: 20121106
  Receipt Date: 20121106
  Transmission Date: 20130627
  Serious: Yes (Death)
  Sender: FDA-Public Use
  Company Number: PHEH2012US021742

PATIENT
  Sex: Male

DRUGS (7)
  1. EXJADE [Suspect]
     Indication: IRON OVERLOAD
     Dosage: 3 DF (1500 mg), daily (completely dissolve the tablet in liquid until fine suspension ios obtained)
     Route: 048
  2. FOLIC ACID [Concomitant]
     Dosage: UNK UKN, UNK
  3. AMBIEN [Concomitant]
     Dosage: UNK UKN, UNK
  4. VIDAZA [Concomitant]
     Dosage: UNK UKN, UNK
  5. PROCHLORPERAZ [Concomitant]
     Dosage: UNK UKN, UNK
  6. NEULASTA [Concomitant]
     Dosage: UNK UKN, UNK
  7. LOMOTIL [Concomitant]
     Dosage: UNK UKN, UNK

REACTIONS (1)
  - Death [Fatal]
